FAERS Safety Report 8201517-4 (Version None)
Quarter: 2012Q1

REPORT INFORMATION
  Report Type: 
  Country: None (occurrence: None)
  Receive Date: 20120312
  Receipt Date: 20120305
  Transmission Date: 20120608
  Serious: Yes (Other)
  Sender: FDA-Public Use
  Company Number: US-GLAXOSMITHKLINE-A0968614A

PATIENT
  Age: 47 Year
  Sex: Female

DRUGS (3)
  1. MEPRON [Suspect]
     Indication: LYME DISEASE
     Dosage: 2.5ML PER DAY
     Route: 048
     Dates: start: 20120301, end: 20120301
  2. TRAMADOL HCL [Concomitant]
  3. SEPTRA [Concomitant]

REACTIONS (19)
  - AGITATION [None]
  - PAIN [None]
  - VOMITING [None]
  - GASTROINTESTINAL DISORDER [None]
  - FLATULENCE [None]
  - DECREASED APPETITE [None]
  - MUSCLE TIGHTNESS [None]
  - DYSPEPSIA [None]
  - FIBROMYALGIA [None]
  - HEPATIC PAIN [None]
  - ERUCTATION [None]
  - MUSCULOSKELETAL PAIN [None]
  - MALAISE [None]
  - THROMBOSIS [None]
  - COORDINATION ABNORMAL [None]
  - MUSCULOSKELETAL CHEST PAIN [None]
  - ASTHENIA [None]
  - ARTHRALGIA [None]
  - DISCOMFORT [None]
